FAERS Safety Report 6369858-3 (Version None)
Quarter: 2009Q3

REPORT INFORMATION
  Report Type: 
  Country: None (occurrence: None)
  Receive Date: 20090923
  Receipt Date: 20090514
  Transmission Date: 20100115
  Serious: Yes (Other)
  Sender: FDA-Public Use
  Company Number: US-ASTRAZENECA-2006UW10794

PATIENT
  Age: 283 Month
  Sex: Male
  Weight: 183.7 kg

DRUGS (6)
  1. SEROQUEL [Suspect]
     Indication: SCHIZOPHRENIA
     Dosage: 100 MG TO 200 MG THREE TIMES A DAY
     Route: 048
     Dates: start: 20070619, end: 20071201
  2. RISPERDAL [Concomitant]
  3. ABILIFY [Concomitant]
     Dates: start: 20080101
  4. EFFEXOR [Concomitant]
     Dates: start: 20070101, end: 20080404
  5. THORAZINE [Concomitant]
     Dates: start: 20070101, end: 20080101
  6. CELEXA [Concomitant]
     Dates: start: 20080404

REACTIONS (4)
  - ANGER [None]
  - SUICIDAL IDEATION [None]
  - TYPE 2 DIABETES MELLITUS [None]
  - WEIGHT INCREASED [None]
